FAERS Safety Report 5367986-2 (Version None)
Quarter: 2007Q2

REPORT INFORMATION
  Report Type: 
  Country: None (occurrence: None)
  Receive Date: 20070622
  Receipt Date: 20070618
  Transmission Date: 20071010
  Serious: Yes (Other)
  Sender: FDA-Public Use
  Company Number: ES-ABBOTT-07P-144-0371748-00

PATIENT
  Age: 38 Year
  Sex: Male

DRUGS (2)
  1. SEVORANE LIQUID FOR INHALATION [Suspect]
     Indication: ANAESTHESIA
     Route: 055
     Dates: start: 20070606, end: 20070606
  2. OXYGEN PROTOXIDE [Concomitant]
     Indication: ANAESTHESIA
     Dates: start: 20070606

REACTIONS (3)
  - HYPERCAPNIA [None]
  - HYPERTHERMIA MALIGNANT [None]
  - MUSCLE SPASMS [None]
